FAERS Safety Report 5303292-X (Version None)
Quarter: 2007Q2

REPORT INFORMATION
  Report Type: 
  Country: None (occurrence: None)
  Receive Date: 20070420
  Receipt Date: 20070412
  Transmission Date: 20071010
  Serious: Yes (Death, Life-Threatening)
  Sender: FDA-Public Use
  Company Number: FR-GLAXOSMITHKLINE-B0460688A

PATIENT
  Age: 55 Year
  Sex: Female
  Weight: 79 kg

DRUGS (5)
  1. ZOPHREN [Suspect]
     Route: 042
     Dates: start: 20070122
  2. COUMADIN [Suspect]
     Indication: THROMBOSIS PROPHYLAXIS
     Dosage: 1MG PER DAY
     Route: 048
     Dates: start: 20070108, end: 20070125
  3. FLUOROURACIL [Suspect]
     Route: 042
  4. CAMPTOSAR [Suspect]
     Route: 042
  5. AVASTIN [Suspect]
     Route: 042
     Dates: start: 20070122

REACTIONS (1)
  - DEATH [None]
